FAERS Safety Report 18742036 (Version 1)
Quarter: 2021Q1

REPORT INFORMATION
  Report Type: Spontaneous
  Country: RO (occurrence: RO)
  Receive Date: 20210114
  Receipt Date: 20210114
  Transmission Date: 20210419
  Serious: Yes (Other)
  Sender: FDA-Public Use
  Company Number: RO-ABBVIE-21K-135-3731119-00

PATIENT

DRUGS (1)
  1. KALETRA [Suspect]
     Active Substance: LOPINAVIR\RITONAVIR
     Indication: COVID-19
     Route: 048

REACTIONS (6)
  - Lichenoid keratosis [Unknown]
  - Pruritus [Unknown]
  - Xeroderma [Unknown]
  - Urticaria [Unknown]
  - Dermatitis exfoliative generalised [Unknown]
  - Off label use [Unknown]
